FAERS Safety Report 7668447-8 (Version None)
Quarter: 2011Q3

REPORT INFORMATION
  Report Type: 
  Country: None (occurrence: None)
  Receive Date: 20110808
  Receipt Date: 20110728
  Transmission Date: 20111222
  Serious: Yes (Hospitalization)
  Sender: FDA-Public Use
  Company Number: US-BAYER-2011-039196

PATIENT
  Age: 42 Year
  Sex: Female
  Weight: 65.306 kg

DRUGS (5)
  1. YAZ [Suspect]
     Dosage: UNK
     Dates: start: 20061201, end: 20090801
  2. PREVACID [Concomitant]
  3. YAZ [Suspect]
     Indication: ORAL CONTRACEPTION
     Dosage: UNK
     Route: 048
     Dates: start: 20061201, end: 20090801
  4. DENAVIR [Concomitant]
     Dosage: 1 %, UNK
  5. FLUCONAZOLE [Concomitant]

REACTIONS (7)
  - BILIARY COLIC [None]
  - BILIARY DILATATION [None]
  - GALLBLADDER DISORDER [None]
  - GALLBLADDER INJURY [None]
  - ABDOMINAL PAIN [None]
  - CHOLELITHIASIS [None]
  - ABDOMINAL PAIN UPPER [None]
